FAERS Safety Report 23586080 (Version 1)
Quarter: 2024Q1

REPORT INFORMATION
  Report Type: Spontaneous
  Country: ES (occurrence: ES)
  Receive Date: 20240301
  Receipt Date: 20240301
  Transmission Date: 20240410
  Serious: Yes (Life-Threatening, Other)
  Sender: FDA-Public Use
  Company Number: ES-TEVA-VS-3148425

PATIENT
  Age: 32 Year
  Sex: Female

DRUGS (1)
  1. GLATIRAMER [Suspect]
     Active Substance: GLATIRAMER
     Indication: Relapsing-remitting multiple sclerosis
     Dosage: UNK
     Route: 065

REACTIONS (15)
  - Anaphylactic reaction [Unknown]
  - Vertigo [Recovered/Resolved]
  - Abdominal pain [Unknown]
  - Dizziness [Recovered/Resolved]
  - Gait disturbance [Recovered/Resolved]
  - Throat tightness [Recovered/Resolved]
  - Hypotension [Unknown]
  - Cold sweat [Recovered/Resolved]
  - Tension headache [Unknown]
  - Dyspnoea [Recovered/Resolved]
  - Hyperhidrosis [Unknown]
  - Tremor [Unknown]
  - Dyspepsia [Recovered/Resolved]
  - Local reaction [Recovered/Resolved]
  - Presyncope [Unknown]
